FAERS Safety Report 8013611-1 (Version None)
Quarter: 2011Q4

REPORT INFORMATION
  Report Type: 
  Country: None (occurrence: None)
  Receive Date: 20111229
  Receipt Date: 20111219
  Transmission Date: 20120403
  Serious: Yes (Other)
  Sender: FDA-Public Use
  Company Number: JP-UCBSA-048075

PATIENT
  Age: 20 Year
  Sex: Female

DRUGS (16)
  1. KEPPRA [Suspect]
     Dosage: DAILY DOSE: 1625MG
     Route: 048
     Dates: start: 20111104, end: 20111108
  2. KEPPRA [Suspect]
     Dosage: DAILY DOSE: 1375MG
     Route: 048
     Dates: start: 20111023, end: 20111027
  3. PHENYTOIN SODIUM CAP [Concomitant]
     Dosage: DAILY DOSE: 200MG
     Dates: end: 20111113
  4. KEPPRA [Suspect]
     Dosage: DAILY DOSE:1500MG
     Route: 048
     Dates: start: 20111028, end: 20111103
  5. KEPPRA [Suspect]
     Indication: EPILEPSY
     Dosage: DAILY DOSE: 2125MG
     Route: 048
     Dates: start: 20111112, end: 20111207
  6. KEPPRA [Suspect]
     Dosage: DAILY DOSE:1875MG
     Route: 048
     Dates: start: 20111109, end: 20111111
  7. KEPPRA [Suspect]
     Dosage: DAILY DOSE: 1000MG
     Route: 048
     Dates: start: 20110725, end: 20110925
  8. KEPPRA [Suspect]
     Route: 048
     Dates: start: 20110328, end: 20110522
  9. KEPPRA [Suspect]
     Dosage: DAILY DOSE: 1125MG
     Route: 048
     Dates: start: 20110926, end: 20111022
  10. CARBAMAZEPINE [Concomitant]
     Dosage: DAILY DOSE:200MG
     Route: 048
     Dates: end: 20111027
  11. PHENOBARBITAL TAB [Concomitant]
     Dosage: DAILY DOSE: 30MG
  12. PHENYTOIN SODIUM CAP [Concomitant]
     Dosage: DAILY DOSE: 250MG
     Dates: start: 20111114
  13. CARBAMAZEPINE [Concomitant]
     Dosage: DAILY DOSE: 550MG
     Route: 048
     Dates: start: 20111028, end: 20111113
  14. KEPPRA [Suspect]
     Dosage: DAILY DOSE:500MG
     Route: 048
     Dates: start: 20110523, end: 20110724
  15. FOLIC ACID [Concomitant]
     Dosage: DAILY DOSE: 5MG
     Dates: start: 20110418
  16. CARBAMAZEPINE [Concomitant]
     Dosage: DAILY DOSE:600MG
     Route: 048
     Dates: start: 20111114

REACTIONS (2)
  - PREGNANCY [None]
  - CAESAREAN SECTION [None]
